FAERS Safety Report 12660373 (Version 2)
Quarter: 2016Q3

REPORT INFORMATION
  Report Type: Spontaneous
  Country: BR (occurrence: BR)
  Receive Date: 20160817
  Receipt Date: 20160902
  Transmission Date: 20161109
  Serious: Yes (Other)
  Sender: FDA-Public Use
  Company Number: PHHY2016BR106614

PATIENT
  Sex: Female
  Weight: 78 kg

DRUGS (10)
  1. APRESOLIN [Suspect]
     Active Substance: HYDRALAZINE HYDROCHLORIDE
     Dosage: 1 DF, QD
     Route: 048
  2. APRESOLIN [Suspect]
     Active Substance: HYDRALAZINE HYDROCHLORIDE
     Dosage: 2 DF, QD
     Route: 048
  3. DIOVAN [Suspect]
     Active Substance: VALSARTAN
     Indication: HYPERTENSION
     Dosage: 1 DF, QD
     Route: 048
  4. FRONTAL [Concomitant]
     Active Substance: ALPRAZOLAM
     Indication: PANIC DISORDER
     Dosage: 2 DF QD
     Route: 065
  5. APRESOLIN [Suspect]
     Active Substance: HYDRALAZINE HYDROCHLORIDE
     Indication: HYPERTENSION
     Dosage: 2 DF, QD
     Route: 048
  6. FRONTAL [Concomitant]
     Active Substance: ALPRAZOLAM
     Indication: ANXIETY
  7. DIOVAN [Suspect]
     Active Substance: VALSARTAN
     Dosage: 1 DF, QD
     Route: 048
  8. HIDROCLOROTIAZIDA [Concomitant]
     Active Substance: HYDROCHLOROTHIAZIDE
     Indication: PRODUCT USED FOR UNKNOWN INDICATION
     Dosage: 1 DF, QD
     Route: 048
  9. DIOVAN [Suspect]
     Active Substance: VALSARTAN
     Dosage: 2 DF, QD
     Route: 048
  10. DIOVAN [Suspect]
     Active Substance: VALSARTAN
     Dosage: 1 DF, BID (1 TABLET IN THE MORNING AND 1 TABLET AT NIGHT)
     Route: 048

REACTIONS (12)
  - Blood pressure inadequately controlled [Recovered/Resolved]
  - Peripheral swelling [Not Recovered/Not Resolved]
  - Malaise [Recovered/Resolved]
  - Hypertension [Not Recovered/Not Resolved]
  - Myalgia [Not Recovered/Not Resolved]
  - Dry mouth [Recovered/Resolved]
  - Abdominal pain upper [Not Recovered/Not Resolved]
  - Blood pressure decreased [Unknown]
  - Hypotonia [Unknown]
  - Gastrointestinal disorder [Recovered/Resolved]
  - Liver disorder [Recovered/Resolved]
  - Chest pain [Not Recovered/Not Resolved]
